FAERS Safety Report 13930562 (Version 1)
Quarter: 2017Q3

REPORT INFORMATION
  Report Type: Spontaneous
  Country: PL (occurrence: PL)
  Receive Date: 20170901
  Receipt Date: 20170901
  Transmission Date: 20171127
  Serious: Yes (Death, Other)
  Sender: FDA-Public Use
  Company Number: PL-TEVA-800769ROM

PATIENT
  Age: 6 Decade
  Sex: Female

DRUGS (6)
  1. OXALIPLATIN. [Suspect]
     Active Substance: OXALIPLATIN
     Indication: MUCINOUS ADENOCARCINOMA OF APPENDIX
     Dosage: 85 MG/M2 INFUSION OVER 2 HOURS
     Route: 050
     Dates: start: 201202, end: 201207
  2. CAPECITABINE. [Concomitant]
     Active Substance: CAPECITABINE
     Indication: MUCINOUS ADENOCARCINOMA OF APPENDIX
     Dosage: FOR 14 DAYS EVERY 21 DAYS
     Route: 065
     Dates: start: 201211
  3. FLUOROURACIL. [Suspect]
     Active Substance: FLUOROURACIL
     Indication: MUCINOUS ADENOCARCINOMA OF APPENDIX
     Dosage: 400MG/M2 BOLUS; FOLLOWED BY 600MG/M2 INFUSION
     Route: 050
     Dates: start: 201202, end: 201207
  4. FOLINIC ACID [Suspect]
     Active Substance: LEUCOVORIN
     Indication: MUCINOUS ADENOCARCINOMA OF APPENDIX
     Dosage: 200 MG/M2 INFUSION OVER 2 HOURS
     Route: 050
     Dates: start: 201202, end: 201207
  5. FLUOROURACIL. [Suspect]
     Active Substance: FLUOROURACIL
     Dosage: 600MG/M2 INFUSION OVER 48 HOURS
     Route: 050
     Dates: start: 201202, end: 201207
  6. REGORAFENIB [Suspect]
     Active Substance: REGORAFENIB
     Indication: MUCINOUS ADENOCARCINOMA OF APPENDIX
     Dosage: 28 DAYS CYCLE; DOSE WAS REDUCED TO 80MG/DAY
     Route: 048
     Dates: start: 2013

REACTIONS (3)
  - Neutropenia [Unknown]
  - Weight decreased [Unknown]
  - Anaemia [Unknown]
